FAERS Safety Report 22975016 (Version 2)
Quarter: 2023Q4

REPORT INFORMATION
  Report Type: Spontaneous
  Country: CH (occurrence: CH)
  Receive Date: 20230923
  Receipt Date: 20231010
  Transmission Date: 20240110
  Serious: Yes (Hospitalization, Other)
  Sender: FDA-Public Use
  Company Number: None

PATIENT
  Age: 62 Year
  Sex: Female

DRUGS (10)
  1. CYCLOPHOSPHAMIDE [Suspect]
     Active Substance: CYCLOPHOSPHAMIDE
     Indication: Anti-neutrophil cytoplasmic antibody positive vasculitis
     Dosage: 800 MG, TOTAL OF 4 DOSES RECEIVED, CYCLICAL
     Route: 041
     Dates: start: 20230508, end: 20230626
  2. FOLIC ACID [Concomitant]
     Active Substance: FOLIC ACID
     Indication: Anti-neutrophil cytoplasmic antibody positive vasculitis
     Dosage: 5 MG, ONCE A WEEK, CHRONIC THERAPY
     Route: 048
  3. PREDNISONE [Concomitant]
     Active Substance: PREDNISONE
     Indication: Anti-neutrophil cytoplasmic antibody positive vasculitis
     Dosage: 15 MG, ONCE A DAY, CHRONIC THERAPY
     Route: 048
  4. PANTOZOL [Concomitant]
     Active Substance: PANTOPRAZOLE SODIUM
     Indication: Prophylaxis against gastrointestinal ulcer
     Dosage: 40 MG, ONCE A DAY, CHRONIC THERAPY
     Route: 048
  5. MYCOSTATIN [Concomitant]
     Active Substance: NYSTATIN
     Indication: Antifungal prophylaxis
     Dosage: 15 ML, ONCE A DAY, CHRONIC THERAPY DOSAGE: 5 ML 3 X DAY,100000 IU/ML
     Route: 048
  6. BACTRIM [Concomitant]
     Active Substance: SULFAMETHOXAZOLE\TRIMETHOPRIM
     Indication: Antibiotic prophylaxis
     Dosage: CHRONIC THERAPY 3 TIMES PER WEEK, SULFAMETHOXAZOLE: 800MG, TRIMETHOPRIM: 160MG
     Route: 048
  7. LERCANIDIPIN MEPHA LACTAB [Concomitant]
     Indication: Hypertension
     Dosage: 10 MG, ONCE A DAY, CHRONIC THERAPY
     Route: 048
  8. PERINDOPRIL ERBUMINE [Concomitant]
     Active Substance: PERINDOPRIL ERBUMINE
     Indication: Hypertension
     Dosage: 10 MG, CHRONIC THERAPY DOSAGE: 5 MG 2 X DAY
     Route: 048
  9. EUTHYROX [Concomitant]
     Active Substance: LEVOTHYROXINE SODIUM
     Indication: Autoimmune thyroiditis
     Dosage: 100 UG, CHRONIC THERAPY 4 TIMES PER WEEK
     Route: 048
  10. EUTHYROX [Concomitant]
     Active Substance: LEVOTHYROXINE SODIUM
     Dosage: 125 UG, CHRONIC THERAPY 3 TIMES PER WEEK
     Route: 048

REACTIONS (3)
  - Troponin increased [Recovering/Resolving]
  - Cardiotoxicity [Recovering/Resolving]
  - Acute myocardial infarction [Recovering/Resolving]

NARRATIVE: CASE EVENT DATE: 20230717
